FAERS Safety Report 22180806 (Version 1)
Quarter: 2023Q2

REPORT INFORMATION
  Report Type: Spontaneous
  Country: US (occurrence: None)
  Receive Date: 20230405
  Receipt Date: 20230405
  Transmission Date: 20230721
  Serious: Yes (Other)
  Sender: FDA-Public Use
  Company Number: None

PATIENT
  Age: 43 Year
  Sex: Female
  Weight: 63.9 kg

DRUGS (9)
  1. AZSTARYS [Suspect]
     Active Substance: DEXMETHYLPHENIDATE HYDROCHLORIDE\SERDEXMETHYLPHENIDATE CHLORIDE
     Indication: Attention deficit hyperactivity disorder
     Route: 048
     Dates: start: 20230320, end: 20230405
  2. BACLOFEN [Concomitant]
     Active Substance: BACLOFEN
  3. ALPRAZOLAM [Concomitant]
     Active Substance: ALPRAZOLAM
  4. TOPIRAMATE [Concomitant]
     Active Substance: TOPIRAMATE
  5. MICROGESTIN [Concomitant]
     Active Substance: ETHINYL ESTRADIOL\NORETHINDRONE ACETATE
  6. QULIPTA [Concomitant]
     Active Substance: ATOGEPANT
  7. VITAMIN D [Concomitant]
     Active Substance: VITAMIN D NOS
  8. Hair, Skin + Nails vitamin [Concomitant]
  9. FLONASE [Concomitant]
     Active Substance: FLUTICASONE PROPIONATE

REACTIONS (5)
  - Somnolence [None]
  - Therapy interrupted [None]
  - Drug ineffective [None]
  - Fatigue [None]
  - Disturbance in attention [None]

NARRATIVE: CASE EVENT DATE: 20230405
